FAERS Safety Report 8376183 (Version 2)
Quarter: 2013Q1

REPORT INFORMATION
  Report Type: Spontaneous
  Country: None (occurrence: US)
  Receive Date: 20120129
  Receipt Date: 20130128
  Transmission Date: 20140127
  Serious: Yes (Hospitalization)
  Sender: FDA-Public Use
  Company Number: US-ABBOTT-12P-163-0888675-00

PATIENT
  Age: 54 None
  Sex: Male
  Weight: 96.25 kg

DRUGS (4)
  1. HUMIRA 40 MG/ 0.8 ML PRE-FILLED SYRINGE [Suspect]
     Indication: PSORIASIS
     Dates: end: 20111127
  2. LOSARTIN [Concomitant]
     Indication: PRODUCT USED FOR UNKNOWN INDICATION
  3. MVI [Concomitant]
     Indication: PRODUCT USED FOR UNKNOWN INDICATION
  4. COUMADIN [Concomitant]
     Indication: ANTICOAGULANT THERAPY
     Dates: start: 201112

REACTIONS (4)
  - Meningitis [Unknown]
  - Headache [Unknown]
  - Headache [Unknown]
  - Thrombosis [Unknown]
